FAERS Safety Report 18148715 (Version 1)
Quarter: 2020Q3

REPORT INFORMATION
  Report Type: Spontaneous
  Country: US (occurrence: US)
  Receive Date: 20200814
  Receipt Date: 20200814
  Transmission Date: 20201103
  Serious: No
  Sender: FDA-Public Use
  Company Number: US-GLAXOSMITHKLINE-US2020151928

PATIENT
  Sex: Female

DRUGS (1)
  1. BENLYSTA [Suspect]
     Active Substance: BELIMUMAB
     Indication: SYSTEMIC LUPUS ERYTHEMATOSUS
     Dosage: UNK UNK, CYC
     Route: 058

REACTIONS (17)
  - Dysgeusia [Unknown]
  - Pain [Unknown]
  - Cough [Unknown]
  - Arthralgia [Unknown]
  - Myalgia [Unknown]
  - Diarrhoea [Unknown]
  - Parosmia [Unknown]
  - Pyrexia [Unknown]
  - Nasal congestion [Unknown]
  - Dysphonia [Unknown]
  - Visual impairment [Unknown]
  - Dizziness [Unknown]
  - Sinus disorder [Unknown]
  - Headache [Unknown]
  - Fatigue [Unknown]
  - Tinnitus [Unknown]
  - Chills [Unknown]
